FAERS Safety Report 21648083 (Version 2)
Quarter: 2022Q4

REPORT INFORMATION
  Report Type: Report from Study
  Country: US (occurrence: US)
  Receive Date: 20221128
  Receipt Date: 20221223
  Transmission Date: 20230112
  Serious: Yes (Other)
  Sender: FDA-Public Use
  Company Number: US-TAKEDA-2022TUS022456

PATIENT
  Sex: Male
  Weight: 68 kg

DRUGS (18)
  1. HUMAN IMMUNOGLOBULIN G [Suspect]
     Active Substance: HUMAN IMMUNOGLOBULIN G
     Indication: Selective IgG subclass deficiency
     Dosage: 50 GRAM, Q4WEEKS
     Route: 042
     Dates: start: 20200602
  2. ACETAMINOPHEN [Concomitant]
     Active Substance: ACETAMINOPHEN
  3. DIPHENHYDRAMINE [Concomitant]
     Active Substance: DIPHENHYDRAMINE
  4. SODIUM CHLORIDE [Concomitant]
     Active Substance: SODIUM CHLORIDE
  5. EPINEPHRINE [Concomitant]
     Active Substance: EPINEPHRINE
  6. Lmx [Concomitant]
  7. AMLODIPINE BESYLATE [Concomitant]
     Active Substance: AMLODIPINE BESYLATE
     Route: 065
  8. TOBRAMYCIN [Concomitant]
     Active Substance: TOBRAMYCIN
     Route: 065
  9. CLONAZEPAM [Concomitant]
     Active Substance: CLONAZEPAM
  10. SELEGILINE HYDROCHLORIDE [Concomitant]
     Active Substance: SELEGILINE HYDROCHLORIDE
  11. FOLIC ACID [Concomitant]
     Active Substance: FOLIC ACID
  12. LITHIUM CARBONATE [Concomitant]
     Active Substance: LITHIUM CARBONATE
  13. FINASTERIDE [Concomitant]
     Active Substance: FINASTERIDE
  14. VALACYCLOVIR [Concomitant]
     Active Substance: VALACYCLOVIR HYDROCHLORIDE
  15. GABAPENTIN [Concomitant]
     Active Substance: GABAPENTIN
  16. VITAMIN D3 [Concomitant]
     Active Substance: CHOLECALCIFEROL
  17. ZARXIO [Concomitant]
     Active Substance: FILGRASTIM-SNDZ
  18. ADEMETIONINE [Concomitant]
     Active Substance: ADEMETIONINE

REACTIONS (5)
  - Skin cancer [Unknown]
  - Urinary tract infection [Unknown]
  - Wound [Unknown]
  - Localised infection [Unknown]
  - Administration site infection [Unknown]
